FAERS Safety Report 25654817 (Version 1)
Quarter: 2025Q3

REPORT INFORMATION
  Report Type: Spontaneous
  Country: EU (occurrence: EU)
  Receive Date: 20250807
  Receipt Date: 20250807
  Transmission Date: 20251020
  Serious: Yes (Hospitalization)
  Sender: RANBAXY
  Company Number: EU-AFSSAPS-AN2025000540

PATIENT
  Age: 29 Year
  Sex: Female
  Weight: 96 kg

DRUGS (12)
  1. MONTELUKAST [Suspect]
     Active Substance: MONTELUKAST
     Indication: Asthma
     Dosage: 10 MILLIGRAM, DAILY
     Route: 048
     Dates: start: 20101124
  2. DESLORATADINE [Suspect]
     Active Substance: DESLORATADINE
     Indication: Asthma
     Dosage: 5 MILLIGRAM, DAILY
     Route: 048
  3. FASENRA [Suspect]
     Active Substance: BENRALIZUMAB
     Indication: Asthma
     Dosage: 1 DOSAGE FORM, MONTHLY
     Route: 058
     Dates: start: 20230613, end: 202409
  4. FERROUS FUMARATE [Suspect]
     Active Substance: FERROUS FUMARATE
     Indication: Pregnancy
     Dosage: 3 DOSAGE FORM, DAILY
     Route: 048
     Dates: start: 20250110, end: 20250314
  5. FOLIC ACID [Suspect]
     Active Substance: FOLIC ACID
     Indication: Pregnancy
     Dosage: 5 MILLIGRAM, DAILY
     Route: 048
     Dates: start: 20250110, end: 20250314
  6. BECLOMETHASONE DIPROPIONATE\FORMOTEROL FUMARATE\GLYCOPYRROLATE [Suspect]
     Active Substance: BECLOMETHASONE DIPROPIONATE\FORMOTEROL FUMARATE\GLYCOPYRROLATE
     Indication: Asthma
     Dosage: 4 DOSAGE FORM, DAILY
     Route: 055
  7. PREDNISOLONE [Suspect]
     Active Substance: PREDNISOLONE
     Indication: Asthma
     Dosage: 60 MILLIGRAM, DAILY
     Route: 048
     Dates: start: 20250115, end: 20250120
  8. PREDNISOLONE [Suspect]
     Active Substance: PREDNISOLONE
     Dosage: 60 MILLIGRAM, DAILY
     Route: 048
     Dates: start: 20250131, end: 20250205
  9. PREDNISOLONE [Suspect]
     Active Substance: PREDNISOLONE
     Dosage: 60 MILLIGRAM, DAILY
     Route: 048
     Dates: start: 20250210, end: 20250215
  10. PREDNISOLONE [Suspect]
     Active Substance: PREDNISOLONE
     Dosage: 20 MILLIGRAM, DAILY
     Route: 048
     Dates: start: 20250216, end: 20250303
  11. PREDNISOLONE [Suspect]
     Active Substance: PREDNISOLONE
     Dosage: 15 MILLIGRAM, DAILY
     Route: 048
     Dates: start: 20250303, end: 20250314
  12. ALBUTEROL [Suspect]
     Active Substance: ALBUTEROL
     Indication: Asthma
     Route: 055

REACTIONS (5)
  - Premature rupture of membranes [Recovered/Resolved]
  - Premature delivery [Recovered/Resolved]
  - Maternal exposure before pregnancy [Recovered/Resolved]
  - Maternal exposure during pregnancy [Recovered/Resolved]
  - Maternal exposure during pregnancy [Recovered/Resolved]

NARRATIVE: CASE EVENT DATE: 20230613
